FAERS Safety Report 20717607 (Version 3)
Quarter: 2022Q2

REPORT INFORMATION
  Report Type: Spontaneous
  Country: CA (occurrence: CA)
  Receive Date: 20220417
  Receipt Date: 20220511
  Transmission Date: 20220721
  Serious: Yes (Life-Threatening)
  Sender: FDA-Public Use
  Company Number: CA-BEH-2022144264

PATIENT
  Age: 23 Year
  Sex: Female
  Weight: 94.35 kg

DRUGS (13)
  1. ALBUREX [Suspect]
     Active Substance: ALBUMIN HUMAN
     Indication: Blood osmolarity
     Dosage: 36 MILLILITER, SINGLE
     Route: 042
     Dates: start: 20210921, end: 20210921
  2. CEFAZOLIN [Concomitant]
     Active Substance: CEFAZOLIN
  3. CISATRACURIUM [Concomitant]
     Active Substance: CISATRACURIUM
  4. ROCURONIUM [Concomitant]
     Active Substance: ROCURONIUM BROMIDE
  5. SUCCINYLCHOLINE [Concomitant]
     Active Substance: SUCCINYLCHOLINE
  6. PROPOFOL [Concomitant]
     Active Substance: PROPOFOL
  7. MIDAZOLAM [Concomitant]
     Active Substance: MIDAZOLAM
  8. FENTANYL [Concomitant]
     Active Substance: FENTANYL
  9. LIDOCAINE [Concomitant]
     Active Substance: LIDOCAINE
  10. BUPIVACAINE [Concomitant]
     Active Substance: BUPIVACAINE
  11. CHLORHEXIDINE [Concomitant]
     Active Substance: CHLORHEXIDINE
  12. METRONIDAZOLE [Concomitant]
     Active Substance: METRONIDAZOLE
  13. SODIUM CHLORIDE [Concomitant]
     Active Substance: SODIUM CHLORIDE

REACTIONS (2)
  - Anaphylactoid reaction [Recovered/Resolved]
  - Hypotensive transfusion reaction [Recovered/Resolved]

NARRATIVE: CASE EVENT DATE: 20210921
